FAERS Safety Report 6631812-1 (Version None)
Quarter: 2010Q1

REPORT INFORMATION
  Report Type: 
  Country: None (occurrence: None)
  Receive Date: 20100310
  Receipt Date: 20100305
  Transmission Date: 20100710
  Serious: Yes (Other)
  Sender: FDA-Public Use
  Company Number: 2009US000054

PATIENT
  Age: 77 Year
  Sex: Male

DRUGS (3)
  1. ENTEREG [Suspect]
     Indication: POSTOPERATIVE ILEUS
     Dosage: 12 MG;X1;PO
     Route: 048
     Dates: start: 20091030, end: 20091030
  2. ARICEPT [Concomitant]
  3. THYROID TAB [Concomitant]

REACTIONS (2)
  - MYOCARDIAL INFARCTION [None]
  - REFUSAL OF TREATMENT BY PATIENT [None]
